FAERS Safety Report 16144672 (Version 1)
Quarter: 2019Q2

REPORT INFORMATION
  Report Type: Report from Study
  Country: US (occurrence: US)
  Receive Date: 20190402
  Receipt Date: 20190402
  Transmission Date: 20190711
  Serious: Yes (Other)
  Sender: FDA-Public Use
  Company Number: US-BIOGEN-2018BI00520719

PATIENT
  Sex: Female

DRUGS (1)
  1. TECFIDERA [Suspect]
     Active Substance: DIMETHYL FUMARATE
     Indication: MULTIPLE SCLEROSIS
     Route: 050
     Dates: start: 2016

REACTIONS (6)
  - Blindness [Unknown]
  - Genital burning sensation [Unknown]
  - Papilloedema [Unknown]
  - Multiple sclerosis relapse [Unknown]
  - Pain [Unknown]
  - Dizziness [Unknown]
